FAERS Safety Report 9475523 (Version 3)
Quarter: 2013Q4

REPORT INFORMATION
  Report Type: Spontaneous
  Country: ZA (occurrence: ZA)
  Receive Date: 20130826
  Receipt Date: 20131128
  Transmission Date: 20140711
  Serious: Yes (Hospitalization)
  Sender: FDA-Public Use
  Company Number: ZA-ROCHE-1261707

PATIENT
  Age: 32 Year
  Sex: Male

DRUGS (6)
  1. CELLCEPT [Suspect]
     Indication: TRANSPLANT
     Route: 065
  2. VALCYTE [Suspect]
     Indication: TRANSPLANT
     Route: 065
  3. PROGRAF [Suspect]
     Indication: TRANSPLANT
     Route: 065
  4. PYRIDOXINE [Concomitant]
  5. ISONICOTINIC ACID HYDRAZIDE [Concomitant]
  6. NEORAL [Concomitant]

REACTIONS (4)
  - Pancreatitis [Recovering/Resolving]
  - Pancreatic cyst [Unknown]
  - Pleural effusion [Unknown]
  - Pancreatic abscess [Unknown]
